FAERS Safety Report 6749565-5 (Version None)
Quarter: 2010Q2

REPORT INFORMATION
  Report Type: 
  Country: None (occurrence: None)
  Receive Date: 20100601
  Receipt Date: 20100526
  Transmission Date: 20101027
  Serious: Yes (Hospitalization)
  Sender: FDA-Public Use
  Company Number: A0786274A

PATIENT
  Age: 50 Year
  Sex: Female
  Weight: 88.2 kg

DRUGS (1)
  1. AVANDAMET [Suspect]
     Indication: DIABETES MELLITUS
     Dosage: 1TAB THREE TIMES PER DAY
     Route: 048
     Dates: start: 20030101, end: 20040101

REACTIONS (2)
  - CARDIAC FAILURE CONGESTIVE [None]
  - SYNCOPE [None]
